FAERS Safety Report 4700773-4 (Version None)
Quarter: 2005Q2

REPORT INFORMATION
  Report Type: 
  Country: None (occurrence: None)
  Receive Date: 20050624
  Receipt Date: 20040720
  Transmission Date: 20051028
  Serious: Yes (Death)
  Sender: FDA-Public Use
  Company Number: 374996

PATIENT
  Age: 54 Year
  Sex: Female

DRUGS (2)
  1. XELODA [Suspect]
  2. KYTRIL [Suspect]

REACTIONS (1)
  - DEATH [None]
